FAERS Safety Report 6634325-6 (Version None)
Quarter: 2010Q1

REPORT INFORMATION
  Report Type: 
  Country: None (occurrence: None)
  Receive Date: 20100312
  Receipt Date: 20100312
  Transmission Date: 20100710
  Serious: Yes (Other)
  Sender: FDA-Public Use
  Company Number: None

PATIENT
  Sex: Female
  Weight: 68.0396 kg

DRUGS (1)
  1. PLAVIX [Suspect]
     Indication: ARTERIAL DISORDER
     Dosage: 75MG 1 PER DAY
     Dates: start: 20091203

REACTIONS (2)
  - ANGINA PECTORIS [None]
  - GAIT DISTURBANCE [None]
